FAERS Safety Report 8629451 (Version 3)
Quarter: 2014Q2

REPORT INFORMATION
  Report Type: Spontaneous
  Country: US (occurrence: US)
  Receive Date: 20120622
  Receipt Date: 20140422
  Transmission Date: 20141212
  Serious: Yes (Hospitalization, Disabling)
  Sender: FDA-Public Use
  Company Number: US-ASTRAZENECA-2012SE35741

PATIENT
  Age: 49 Year
  Sex: Female
  Weight: 82.6 kg

DRUGS (14)
  1. NEXIUM [Suspect]
     Route: 048
  2. NEXIUM [Suspect]
     Route: 048
     Dates: start: 20080501
  3. GAS-X [Concomitant]
  4. ZANTAC [Concomitant]
  5. TUMS [Concomitant]
  6. MILK OF MAGNESIA [Concomitant]
  7. PEPTO-BISMOL [Concomitant]
  8. ROLAIDS [Concomitant]
     Dosage: AS NEEDED
  9. FLUCONAZOLE [Concomitant]
     Dates: start: 20080501
  10. RANITIDINE [Concomitant]
     Dates: start: 20090123
  11. DIOVAN-HCT [Concomitant]
     Dosage: 160/12.5 MG
     Dates: start: 20080601
  12. PROMETHAZINE [Concomitant]
     Dates: start: 20110103
  13. AMLODIPINE BESYLATE [Concomitant]
     Dates: start: 20110811
  14. MELOXICAM [Concomitant]
     Dates: start: 20111010

REACTIONS (8)
  - Wrist fracture [Unknown]
  - Road traffic accident [Unknown]
  - Diabetes mellitus [Unknown]
  - Head injury [Unknown]
  - Osteoporosis [Unknown]
  - Foot fracture [Unknown]
  - Fractured coccyx [Unknown]
  - Fall [Unknown]
